FAERS Safety Report 8438258-4 (Version None)
Quarter: 2012Q2

REPORT INFORMATION
  Report Type: 
  Country: None (occurrence: None)
  Receive Date: 20120614
  Receipt Date: 20120612
  Transmission Date: 20120825
  Serious: Yes (Hospitalization)
  Sender: FDA-Public Use
  Company Number: PHHY2012TR050318

PATIENT
  Age: 70 Year
  Sex: Female

DRUGS (1)
  1. WARFARIN SODIUM [Suspect]
     Dosage: 5 MG, QD
     Route: 048

REACTIONS (5)
  - FEMORAL NERVE PALSY [None]
  - HYPOAESTHESIA [None]
  - PARAESTHESIA [None]
  - MUSCLE HAEMORRHAGE [None]
  - ARTHRALGIA [None]
